FAERS Safety Report 9966773 (Version 1)
Quarter: 2014Q1

REPORT INFORMATION
  Report Type: Report from Study
  Country: US (occurrence: US)
  Receive Date: 20140305
  Receipt Date: 20140305
  Transmission Date: 20141002
  Serious: No
  Sender: FDA-Public Use
  Company Number: US-ABBVIE-13P-163-1123256-00

PATIENT
  Age: 67 Year
  Sex: Female

DRUGS (18)
  1. HUMIRA [Suspect]
     Indication: COLITIS ULCERATIVE
     Dosage: FIRST LOADING DOSE (4 INJECTIONS)
     Dates: start: 20130614, end: 20130614
  2. HUMIRA [Suspect]
     Dosage: SECOND LOADING DOSE (2 INJECTIONS)
     Dates: start: 20130628
  3. AZATHIOPRINE [Concomitant]
     Indication: COLITIS ULCERATIVE
  4. DICYCLOMINE [Concomitant]
     Indication: COLITIS ULCERATIVE
     Dosage: 2 TABLETS DAILY
  5. APRISO [Concomitant]
     Indication: COLITIS ULCERATIVE
     Dosage: 4 TABLETS DAILY
  6. DELZICOL [Concomitant]
     Indication: COLITIS ULCERATIVE
     Dosage: 4 TABLETS DAILY
  7. ATORVASTATIN [Concomitant]
     Indication: BLOOD CHOLESTEROL INCREASED
  8. QUINAPRIL [Concomitant]
     Indication: HYPERTENSION
  9. MONTELUKAST [Concomitant]
     Indication: SINUS DISORDER
  10. ASPIRIN [Concomitant]
     Indication: PRODUCT USED FOR UNKNOWN INDICATION
  11. BOOST HIGH PROTEIN SHAKE [Concomitant]
     Indication: PRODUCT USED FOR UNKNOWN INDICATION
     Dosage: 1
  12. I-PROMISE [Concomitant]
     Indication: PRODUCT USED FOR UNKNOWN INDICATION
  13. BIOTEARS [Concomitant]
     Indication: PRODUCT USED FOR UNKNOWN INDICATION
     Dosage: 2 TABLETS DAILY
  14. VITAMIN E [Concomitant]
     Indication: PRODUCT USED FOR UNKNOWN INDICATION
     Dosage: 400 IU DAILY
  15. CENTRUM SILVER [Concomitant]
     Indication: PRODUCT USED FOR UNKNOWN INDICATION
  16. PROBIOTIC PROHEALTH [Concomitant]
     Indication: PRODUCT USED FOR UNKNOWN INDICATION
  17. MUCINEX [Concomitant]
     Indication: SINUS DISORDER
     Dosage: AS NEEDED
  18. IMODIUM [Concomitant]
     Indication: DIARRHOEA

REACTIONS (1)
  - Injection site pain [Recovered/Resolved]
